FAERS Safety Report 19857343 (Version 5)
Quarter: 2022Q1

REPORT INFORMATION
  Report Type: Report from Study
  Country: DE (occurrence: DE)
  Receive Date: 20210921
  Receipt Date: 20220223
  Transmission Date: 20220423
  Serious: Yes (Other)
  Sender: FDA-Public Use
  Company Number: DE-CELLTRION INC.-2021DE006627

PATIENT

DRUGS (18)
  1. TRASTUZUMAB [Suspect]
     Active Substance: TRASTUZUMAB
     Indication: Breast cancer
     Dosage: 336 MG (DATE OF LAST DOSE (336 MG) APPLICATION PRIOR EVENT: 10/DEC/2020 DATE OF LAST DOSE (336 MG) A
     Route: 041
     Dates: start: 20201210, end: 20210328
  2. TRASTUZUMAB [Suspect]
     Active Substance: TRASTUZUMAB
     Dosage: 336 MG (DATE OF MOST RECENT DOSE PRIOR TO AE 20/JUL/2021: 326 MG)
     Route: 041
     Dates: start: 20210518
  3. DOCETAXEL [Suspect]
     Active Substance: DOCETAXEL
     Indication: Breast cancer
     Dosage: 120 MG (DATE OF LAST DOSE (118 MG) APPLICATION PRIOR EVENT 10/DEC/2020) DATE OF LAST DOSE (118 MG) A
     Route: 065
     Dates: start: 20201118, end: 20210104
  4. PERTUZUMAB [Suspect]
     Active Substance: PERTUZUMAB
     Indication: Breast cancer
     Dosage: 420 MG (DATE OF DOSE (420 MG) LAST APPLICATION PRIOR EVENT: 10/DEC/2020 DATE OF DOSE (420 MG) LAST A
     Route: 065
     Dates: start: 20201210, end: 20210328
  5. PERTUZUMAB [Suspect]
     Active Substance: PERTUZUMAB
     Dosage: 420 MG (DATE OF MOST RECENT DOSE PRIOR TO AE 20/JUL/2021: 420 MG)
     Route: 065
     Dates: start: 20210518
  6. ZOLEDRONIC ACID [Suspect]
     Active Substance: ZOLEDRONIC ACID
     Indication: Metastases to bone
     Dosage: Q4WEEKS, 2ND DOSE ON 16/DEC/2020 AND 3RD DOSE ON 13/JAN/2021. DATE OF LAST DOSE (4 MG) APPLICATION P
     Route: 065
     Dates: start: 20201118
  7. DEXAMETHASONE [Concomitant]
     Active Substance: DEXAMETHASONE
     Dosage: 32 MG
     Route: 048
     Dates: start: 20201117, end: 20210106
  8. DEXAMETHASONE [Concomitant]
     Active Substance: DEXAMETHASONE
     Dosage: 8 MILLIGRAM
     Route: 042
     Dates: start: 20201118, end: 20210104
  9. BISOPROLOL [Concomitant]
     Active Substance: BISOPROLOL
     Dosage: 2.5 MG, 0.5 DAY
     Route: 048
     Dates: start: 20210709
  10. OMEPRAZOLE [Concomitant]
     Active Substance: OMEPRAZOLE
     Dosage: 20 MG
     Route: 048
     Dates: start: 20210104, end: 20210109
  11. CALCIUM\CHOLECALCIFEROL [Concomitant]
     Active Substance: CALCIUM\CHOLECALCIFEROL
     Dosage: CALCIUM 500 MG / VITAMIN D 400 IU DAILY
     Route: 048
     Dates: start: 20201118
  12. CALCIUM\CHOLECALCIFEROL [Concomitant]
     Active Substance: CALCIUM\CHOLECALCIFEROL
     Dosage: 400 IU, QD
     Route: 048
     Dates: start: 20201118
  13. NOVALGIN (METAMIZOLE SODIUM) [Concomitant]
     Active Substance: METAMIZOLE SODIUM
     Dosage: 500 MG
     Route: 048
     Dates: start: 20210104, end: 20210109
  14. DIMETHINDENE MALEATE [Concomitant]
     Active Substance: DIMETHINDENE MALEATE
     Dosage: 4 MG
     Route: 042
     Dates: start: 20201118, end: 20210104
  15. BEPANTHEN AUGEN- UND NASENSALBE [Concomitant]
     Dosage: UNK
     Route: 061
     Dates: start: 20210622
  16. GYNOMUNAL [CHOLESTEROL;HUMULUS LUPULUS;HYALURONIC ACID;TOCOPHERYL ACET [Concomitant]
     Dosage: 2.5 MG
     Route: 061
     Dates: start: 20210208, end: 20210222
  17. ELIQUIS [Concomitant]
     Active Substance: APIXABAN
     Dosage: 5 MG, 0.5 DAY
     Route: 048
     Dates: start: 20210709
  18. SEA SALT [Concomitant]
     Active Substance: SEA SALT
     Dosage: 0.5 DAILY
     Route: 045
     Dates: start: 20211026

REACTIONS (10)
  - Atrial fibrillation [Recovered/Resolved]
  - Osteochondrosis [Not Recovered/Not Resolved]
  - Abdominal pain upper [Recovered/Resolved]
  - Vulvovaginal dryness [Recovered/Resolved]
  - Anaemia [Recovered/Resolved]
  - Dry skin [Not Recovered/Not Resolved]
  - Dysgeusia [Recovered/Resolved]
  - Left ventricular dysfunction [Recovered/Resolved]
  - Back pain [Not Recovered/Not Resolved]
  - Underdose [Unknown]

NARRATIVE: CASE EVENT DATE: 20201217
